FAERS Safety Report 7551663-3 (Version None)
Quarter: 2011Q2

REPORT INFORMATION
  Report Type: 
  Country: None (occurrence: None)
  Receive Date: 20110616
  Receipt Date: 20110606
  Transmission Date: 20111010
  Serious: Yes (Other)
  Sender: FDA-Public Use
  Company Number: DE-TEVA-285084GER

PATIENT
  Sex: Female

DRUGS (1)
  1. TEVANATE [Suspect]

REACTIONS (1)
  - AGE-RELATED MACULAR DEGENERATION [None]
